FAERS Safety Report 7547757-9 (Version None)
Quarter: 2011Q2

REPORT INFORMATION
  Report Type: 
  Country: None (occurrence: None)
  Receive Date: 20110614
  Receipt Date: 20110601
  Transmission Date: 20111010
  Serious: Yes (Life-Threatening, Other)
  Sender: FDA-Public Use
  Company Number: GB-MYLANLABS-2011S1011269

PATIENT
  Age: 74 Year
  Sex: Female

DRUGS (5)
  1. ATENOLOL [Suspect]
     Indication: PERICARDITIS
  2. CLOPIDOGREL [Suspect]
     Indication: PERICARDITIS
  3. HEPARIN [Suspect]
     Indication: PERICARDITIS
  4. TENECTEPLASE [Suspect]
     Indication: PERICARDITIS
  5. ASPIRIN [Suspect]
     Indication: PERICARDITIS

REACTIONS (4)
  - PERICARDIAL HAEMORRHAGE [None]
  - SHOCK [None]
  - CARDIAC ARREST [None]
  - CARDIAC TAMPONADE [None]
